FAERS Safety Report 9485048 (Version 1)
Quarter: 2013Q3

REPORT INFORMATION
  Report Type: Spontaneous
  Country: US (occurrence: US)
  Receive Date: 20130828
  Receipt Date: 20130828
  Transmission Date: 20140515
  Serious: No
  Sender: FDA-Public Use
  Company Number: US-ABBOTT-13P-163-1113663-00

PATIENT
  Age: 71 Year
  Sex: Male

DRUGS (1)
  1. ANDROGEL [Suspect]
     Indication: BLOOD TESTOSTERONE DECREASED
     Dosage: 2 PUMPS DAILY, 88G
     Route: 062

REACTIONS (4)
  - Product physical issue [Unknown]
  - Drug ineffective [Unknown]
  - Product outer packaging issue [Unknown]
  - Product tampering [Unknown]
